FAERS Safety Report 23480456 (Version 1)
Quarter: 2024Q1

REPORT INFORMATION
  Report Type: Spontaneous
  Country: GB (occurrence: GB)
  Receive Date: 20240205
  Receipt Date: 20240205
  Transmission Date: 20240410
  Serious: Yes (Other)
  Sender: FDA-Public Use
  Company Number: GB-AMGEN-GBRSP2024019588

PATIENT
  Age: 77 Year
  Sex: Female
  Weight: 108 kg

DRUGS (13)
  1. REPATHA [Suspect]
     Active Substance: EVOLOCUMAB
     Indication: Product used for unknown indication
     Dosage: 140 MILLIGRAM/1 ML
     Route: 065
     Dates: start: 20231214
  2. APIXABAN [Concomitant]
     Active Substance: APIXABAN
     Indication: Anticoagulant therapy
     Dosage: 1 DOSAGE FORM, BID
     Dates: start: 20230815
  3. BENDROFLUMETHIAZIDE [Concomitant]
     Active Substance: BENDROFLUMETHIAZIDE
     Dosage: 1 DOSAGE FORM, QD
     Dates: start: 20230815
  4. CHLORPHENIRAMINE MALEATE [Concomitant]
     Active Substance: CHLORPHENIRAMINE MALEATE
     Dosage: TAKE ONE EVERY 4-6 HRS
     Dates: start: 20240119
  5. DIGOXIN [Concomitant]
     Active Substance: DIGOXIN
     Indication: Cardiovascular disorder
     Dosage: 1 DOSAGE FORM, QD
     Dates: start: 20230815
  6. FLUOXETINE [Concomitant]
     Active Substance: FLUOXETINE HYDROCHLORIDE
     Indication: Depression
     Dosage: IN THE MORNING
     Dates: start: 20230815
  7. FOSFOMYCIN [Concomitant]
     Active Substance: FOSFOMYCIN
     Dosage: TAKE ONE SACHET AT THE FIRST SIGN OF URINE INFE...
     Dates: start: 20230815
  8. NITROGLYCERIN [Concomitant]
     Active Substance: NITROGLYCERIN
     Dosage: TAKE 1-2 DOSES UNDER THE TONGUEAT ONSET OF ANGI...
     Route: 060
     Dates: start: 20230815
  9. LANSOPRAZOLE [Concomitant]
     Active Substance: LANSOPRAZOLE
     Indication: Dyspepsia
     Dosage: 1 DOSAGE FORM, QD
     Dates: start: 20230815
  10. LEVOTHYROXINE [Concomitant]
     Active Substance: LEVOTHYROXINE\LEVOTHYROXINE SODIUM
     Dosage: 1 DOSAGE FORM, QD
     Dates: start: 20230815
  11. NEBIVOLOL [Concomitant]
     Active Substance: NEBIVOLOL
     Dosage: 1 DOSAGE FORM, QD
     Dates: start: 20230815
  12. ACETAMINOPHEN [Concomitant]
     Active Substance: ACETAMINOPHEN
     Dosage: 2 DOSAGE FORM
     Dates: start: 20230815
  13. PREDNISOLONE [Concomitant]
     Active Substance: PREDNISOLONE
     Dosage: 6 DOSAGE FORM, QD
     Dates: start: 20240119

REACTIONS (2)
  - Dyspnoea [Recovered/Resolved]
  - Hypersensitivity [Recovered/Resolved]
